FAERS Safety Report 5810934-9 (Version None)
Quarter: 2008Q3

REPORT INFORMATION
  Report Type: 
  Country: None (occurrence: None)
  Receive Date: 20080716
  Receipt Date: 20080707
  Transmission Date: 20090109
  Serious: Yes (Other)
  Sender: FDA-Public Use
  Company Number: PHEH2006US03325

PATIENT
  Sex: Female
  Weight: 68.027 kg

DRUGS (14)
  1. VIVELLE [Suspect]
     Indication: MENOPAUSAL SYMPTOMS
     Dosage: 0.1 MG, UNK
     Route: 062
     Dates: start: 19930101, end: 20030101
  2. VIVELLE [Suspect]
     Indication: PROPHYLAXIS
     Dosage: 0.9 MG, UNK
     Route: 062
  3. ESTRADERM [Suspect]
     Indication: MENOPAUSE
  4. PREMARIN [Suspect]
     Indication: MENOPAUSE
     Dosage: 0.625 MG, QD
     Route: 048
     Dates: start: 19930101, end: 19990101
  5. PREMARIN [Suspect]
     Indication: PROPHYLAXIS
  6. PROVERA [Suspect]
     Indication: MENOPAUSE
     Dosage: 5 MG, UNK
     Route: 048
     Dates: start: 19930101, end: 19990101
  7. MEDROXYPROGESTERONE [Suspect]
     Indication: MENOPAUSE
     Dosage: 5 MG, UNK
     Route: 048
     Dates: start: 19990101, end: 20030101
  8. MEDROXYPROGESTERONE [Suspect]
     Indication: PROPHYLAXIS
  9. HYDROCHLOROTHIAZIDE [Concomitant]
     Indication: HYPERTENSION
     Dosage: 25 MG, UNK
     Dates: start: 19900101, end: 20030101
  10. ANTIHYPERTENSIVE DRUGS [Concomitant]
  11. ACCUPRIL [Concomitant]
     Dosage: 20 MG, UNK
  12. PROZAC [Concomitant]
     Dosage: 20 MG, UNK
  13. AMBIEN [Concomitant]
     Dosage: 2.5 MG, UNK
  14. LISINOPRIL [Concomitant]
     Indication: HYPERTENSION
     Dosage: UNK
     Dates: start: 20030101

REACTIONS (35)
  - ABDOMINAL PAIN UPPER [None]
  - ANGINA PECTORIS [None]
  - ARRHYTHMIA [None]
  - BIOPSY BREAST [None]
  - BLADDER DISORDER [None]
  - BLOOD POTASSIUM DECREASED [None]
  - BREAST CANCER IN SITU [None]
  - BREAST CYST [None]
  - BREAST HYPERPLASIA [None]
  - BREAST MASS [None]
  - BREAST RECONSTRUCTION [None]
  - BREAST TENDERNESS [None]
  - CELLULITIS [None]
  - CHEST PAIN [None]
  - DEPRESSION [None]
  - FEELING ABNORMAL [None]
  - GASTROOESOPHAGEAL REFLUX DISEASE [None]
  - HIATUS HERNIA [None]
  - HYPERTONIC BLADDER [None]
  - LUMBAR SPINAL STENOSIS [None]
  - MAMMOPLASTY [None]
  - MASTECTOMY [None]
  - MENISCUS LESION [None]
  - MENISCUS REMOVAL [None]
  - NEUROGENIC BLADDER [None]
  - OESOPHAGEAL PAIN [None]
  - OSTEOPENIA [None]
  - POLLAKIURIA [None]
  - RENAL CYST [None]
  - RENAL MASS [None]
  - RENAL TUMOUR EXCISION [None]
  - SPINAL OSTEOARTHRITIS [None]
  - URINARY INCONTINENCE [None]
  - WOUND [None]
  - WOUND CLOSURE [None]
